FAERS Safety Report 8688772 (Version 6)
Quarter: 2012Q4

REPORT INFORMATION
  Report Type: 
  Country: US (occurrence: US)
  Receive Date: 20120727
  Receipt Date: 20121207
  Transmission Date: 20130627
  Serious: Yes (Hospitalization, Other)
  Sender: FDA-Public Use
  Company Number: US-009507513-2012SP017341

PATIENT
  Age: 19 Year
  Sex: Female
  Weight: 127 kg

DRUGS (1)
  1. NUVARING [Suspect]
     Dosage: UNK
     Dates: start: 20051201, end: 201005

REACTIONS (22)
  - Pulmonary embolism [Unknown]
  - Deep vein thrombosis [Unknown]
  - Tonsillectomy [Unknown]
  - Anxiety [Unknown]
  - Pain [Unknown]
  - Pulmonary valve incompetence [Unknown]
  - Tricuspid valve incompetence [Unknown]
  - Mitral valve incompetence [Unknown]
  - Headache [Unknown]
  - Acute tonsillitis [Unknown]
  - Sialoadenitis [Unknown]
  - Major depression [Recovering/Resolving]
  - Arthralgia [Unknown]
  - Vomiting [Unknown]
  - Nausea [Unknown]
  - Adenoidectomy [Unknown]
  - Tonsillar hypertrophy [Unknown]
  - Upper airway obstruction [Unknown]
  - Upper respiratory tract infection [Unknown]
  - Sinusitis [Unknown]
  - Pharyngitis [Unknown]
  - Overdose [Unknown]
